FAERS Safety Report 6055076-5 (Version None)
Quarter: 2009Q1

REPORT INFORMATION
  Report Type: 
  Country: None (occurrence: None)
  Receive Date: 20090128
  Receipt Date: 20090119
  Transmission Date: 20090719
  Serious: Yes (Hospitalization, Other)
  Sender: FDA-Public Use
  Company Number: FR-ROCHE-570908

PATIENT
  Age: 74 Year
  Sex: Female

DRUGS (4)
  1. ROFERON-A [Suspect]
     Indication: DRUG USE FOR UNKNOWN INDICATION
     Dosage: DOSAGE REGIMEN: 9MIU/WEE
     Route: 065
     Dates: start: 20080425
  2. AVASTIN [Suspect]
     Indication: RECTAL CANCER METASTATIC
     Route: 042
     Dates: start: 20080425
  3. INTERFERON [Concomitant]
  4. ATACAND [Concomitant]
     Dates: start: 20080506

REACTIONS (2)
  - NERVOUS SYSTEM DISORDER [None]
  - REVERSIBLE POSTERIOR LEUKOENCEPHALOPATHY SYNDROME [None]
